FAERS Safety Report 5631658-7 (Version None)
Quarter: 2008Q1

REPORT INFORMATION
  Report Type: 
  Country: None (occurrence: None)
  Receive Date: 20080211
  Receipt Date: 20080128
  Transmission Date: 20080703
  Serious: Yes (Other)
  Sender: FDA-Public Use
  Company Number: THYM-1000568

PATIENT
  Age: 14 Year
  Sex: Female

DRUGS (16)
  1. THYMOGLOBULIN [Suspect]
     Indication: RENAL TRANSPLANT
     Dosage: 1.5 MG/KG, QD, INTRAVENOUS, 1.5  MG/KG, ONCE, INTRAVENOUS
     Route: 042
     Dates: start: 20080117, end: 20080121
  2. THYMOGLOBULIN [Suspect]
     Indication: RENAL TRANSPLANT
     Dosage: 1.5 MG/KG, QD, INTRAVENOUS, 1.5  MG/KG, ONCE, INTRAVENOUS
     Route: 042
     Dates: start: 20080123, end: 20080123
  3. THYMOGLOBULIN [Suspect]
     Indication: RENAL TRANSPLANT
     Dosage: 1.5 MG/KG, QD, INTRAVENOUS, 1.5  MG/KG, ONCE, INTRAVENOUS
     Route: 042
     Dates: start: 20080125, end: 20080125
  4. ACETAMINOPHEN [Concomitant]
  5. BACTRIM [Concomitant]
  6. BENADRYL [Concomitant]
  7. PHENERGAN [Concomitant]
  8. DILAUDID [Concomitant]
  9. ZOFRAN [Concomitant]
  10. MYCOPHENOLATE (MYCOPHENOLATE MOFETIL) [Concomitant]
  11. ASPIRIN [Concomitant]
  12. PRAVACHOL [Concomitant]
  13. FLUCONAZOLE [Concomitant]
  14. NAFCILLIN (NAFACILLIN) [Concomitant]
  15. PEPCID (FAMOTIDINE, MAGNESIUM HYDROXIDE) [Concomitant]
  16. CORTICOSTEROIDS [Concomitant]

REACTIONS (12)
  - ACTIVATED PARTIAL THROMBOPLASTIN TIME PROLONGED [None]
  - BLOOD AMYLASE INCREASED [None]
  - BLOOD BILIRUBIN INCREASED [None]
  - BLOOD PRESSURE DECREASED [None]
  - COMPLICATIONS OF TRANSPLANTED KIDNEY [None]
  - HAEMOLYSIS [None]
  - HEPATIC FUNCTION ABNORMAL [None]
  - HYPOXIA [None]
  - INTERNATIONAL NORMALISED RATIO ABNORMAL [None]
  - MEAN ARTERIAL PRESSURE DECREASED [None]
  - PAIN [None]
  - PYREXIA [None]
